FAERS Safety Report 16370275 (Version 1)
Quarter: 2019Q2

REPORT INFORMATION
  Report Type: Report from Study
  Country: US (occurrence: US)
  Receive Date: 20190530
  Receipt Date: 20190530
  Transmission Date: 20190711
  Serious: Yes (Other)
  Sender: FDA-Public Use
  Company Number: US-ROCHE-2324500

PATIENT
  Age: 58 Year
  Sex: Female
  Weight: 62.2 kg

DRUGS (1)
  1. RITUXAN [Suspect]
     Active Substance: RITUXIMAB
     Indication: RHEUMATOID ARTHRITIS
     Dosage: ONGOING: YES
     Route: 065
     Dates: start: 2015

REACTIONS (5)
  - Ear infection [Recovered/Resolved]
  - Ear swelling [Unknown]
  - Tympanic membrane perforation [Recovered/Resolved]
  - Cholesteatoma [Recovered/Resolved]
  - Nasopharyngitis [Recovered/Resolved]

NARRATIVE: CASE EVENT DATE: 20181211
